FAERS Safety Report 6761432-X (Version None)
Quarter: 2010Q2

REPORT INFORMATION
  Report Type: 
  Country: None (occurrence: None)
  Receive Date: 20100607
  Receipt Date: 20100601
  Transmission Date: 20101027
  Serious: Yes (Hospitalization)
  Sender: FDA-Public Use
  Company Number: 012897

PATIENT
  Sex: Female
  Weight: 52 kg

DRUGS (1)
  1. CERTOLIZUMAB PEGOL (CERTOLIZUMAB PEGOL) [Suspect]
     Indication: RHEUMATOID ARTHRITIS
     Dosage: (200 MG 1X/2 WEEKS SUBCUTANEOUS)
     Route: 058
     Dates: start: 20090426, end: 20100520

REACTIONS (4)
  - ASTHENIA [None]
  - HEADACHE [None]
  - HYPERHIDROSIS [None]
  - PYELONEPHRITIS ACUTE [None]
